FAERS Safety Report 15801351 (Version 4)
Quarter: 2019Q1

REPORT INFORMATION
  Report Type: Report from Study
  Country: CA (occurrence: CA)
  Receive Date: 20190109
  Receipt Date: 20190319
  Transmission Date: 20190417
  Serious: Yes (Other)
  Sender: FDA-Public Use
  Company Number: CA-UCBSA-2019000718

PATIENT
  Age: 52 Year
  Sex: Male

DRUGS (3)
  1. CERTOLIZUMAB PEGOL RA [Suspect]
     Active Substance: CERTOLIZUMAB PEGOL
     Dosage: 200 MG, EVERY 10 DAYS
     Route: 058
     Dates: start: 20181026, end: 20190305
  2. CERTOLIZUMAB PEGOL RA [Suspect]
     Active Substance: CERTOLIZUMAB PEGOL
     Dosage: 200 MG, EVERY 10 DAYS
     Route: 058
     Dates: start: 20181026, end: 20190305
  3. CERTOLIZUMAB PEGOL RA [Suspect]
     Active Substance: CERTOLIZUMAB PEGOL
     Indication: RHEUMATOID ARTHRITIS
     Dosage: 200 MG, EV 2 WEEKS(QOW)
     Route: 058
     Dates: start: 20180826, end: 2018

REACTIONS (4)
  - Off label use [Unknown]
  - Urinary tract infection [Recovered/Resolved]
  - Drug ineffective [Unknown]
  - Prostate infection [Unknown]

NARRATIVE: CASE EVENT DATE: 2018
